FAERS Safety Report 4932337-1 (Version None)
Quarter: 2006Q1

REPORT INFORMATION
  Report Type: 
  Country: None (occurrence: None)
  Receive Date: 20060303
  Receipt Date: 20060222
  Transmission Date: 20060701
  Serious: Yes (Life-Threatening, Hospitalization)
  Sender: FDA-Public Use
  Company Number: DE-ABBOTT-06P-062-0325897-00

PATIENT
  Sex: Male

DRUGS (4)
  1. ERGENYL CHRONO TABLETS [Suspect]
     Indication: HISTRIONIC PERSONALITY DISORDER
     Route: 048
     Dates: start: 20050801, end: 20060110
  2. ERGENYL CHRONO TABLETS [Suspect]
     Indication: DEPRESSION
     Route: 048
     Dates: start: 20060111, end: 20060111
  3. ERGENYL CHRONO TABLETS [Suspect]
     Indication: INCREASED APPETITE
  4. ETHANOL [Concomitant]
     Indication: DRUG USE FOR UNKNOWN INDICATION

REACTIONS (4)
  - ALCOHOL USE [None]
  - AMMONIA INCREASED [None]
  - BRADYCARDIA [None]
  - SUICIDE ATTEMPT [None]
